FAERS Safety Report 9416295 (Version 3)
Quarter: 2013Q3

REPORT INFORMATION
  Report Type: Spontaneous
  Country: HU (occurrence: HU)
  Receive Date: 20130724
  Receipt Date: 20130814
  Transmission Date: 20140515
  Serious: Yes (Hospitalization, Other)
  Sender: FDA-Public Use
  Company Number: HU-RANBAXY-2013RR-71485

PATIENT
  Age: 43 Year
  Sex: Male

DRUGS (4)
  1. ATORIS [Suspect]
     Indication: HYPERLIPIDAEMIA
     Dosage: 20 MG/DAY
     Route: 065
  2. FENOSWISS [Interacting]
     Indication: HYPERTRIGLYCERIDAEMIA
     Dosage: 160 MG/DAY
     Route: 065
  3. NEBIVOLOL [Interacting]
     Indication: HYPERTENSION
     Dosage: 2.5 MG/DAY
     Route: 065
  4. VARENICLINE [Interacting]
     Indication: NICOTINE DEPENDENCE
     Dosage: UNK
     Route: 065

REACTIONS (3)
  - Myositis [Recovering/Resolving]
  - Rhabdomyolysis [Recovered/Resolved]
  - Drug interaction [Recovered/Resolved]
